FAERS Safety Report 8489523-6 (Version None)
Quarter: 2012Q3

REPORT INFORMATION
  Report Type: 
  Country: None (occurrence: None)
  Receive Date: 20120705
  Receipt Date: 20120626
  Transmission Date: 20120928
  Serious: Yes (Other)
  Sender: FDA-Public Use
  Company Number: GB-JNJFOC-20120613878

PATIENT
  Sex: Female

DRUGS (2)
  1. SIMPONI [Suspect]
     Indication: PRODUCT USED FOR UNKNOWN INDICATION
     Route: 058
     Dates: start: 20120616
  2. SIMPONI [Suspect]
     Route: 058

REACTIONS (4)
  - RASH MACULAR [None]
  - EYE HAEMORRHAGE [None]
  - DEPRESSED MOOD [None]
  - IRRITABILITY [None]
